FAERS Safety Report 20082860 (Version 1)
Quarter: 2021Q4

REPORT INFORMATION
  Report Type: Spontaneous
  Country: US (occurrence: None)
  Receive Date: 20211117
  Receipt Date: 20211117
  Transmission Date: 20220303
  Serious: Yes (Death)
  Sender: FDA-Public Use
  Company Number: None

PATIENT
  Age: 78 Year
  Sex: Female
  Weight: 88.4 kg

DRUGS (11)
  1. REGEN-COV [Suspect]
     Active Substance: CASIRIVIMAB\IMDEVIMAB
     Indication: COVID-19
     Dosage: OTHER FREQUENCY : ONCE;?
     Route: 042
     Dates: start: 20211112, end: 20211112
  2. ACETAMINOPHEN [Concomitant]
     Active Substance: ACETAMINOPHEN
     Dates: start: 20211112, end: 20211112
  3. AMLODIPINE [Concomitant]
     Active Substance: AMLODIPINE BESYLATE
     Dates: start: 20211112, end: 20211112
  4. DEXAMETHASONE [Concomitant]
     Active Substance: DEXAMETHASONE
     Dates: start: 20211112, end: 20211112
  5. HYDROMORPHONE [Concomitant]
     Active Substance: HYDROMORPHONE
     Dates: start: 20211111, end: 20211111
  6. INSULIN NOS [Concomitant]
     Active Substance: INSULIN NOS
     Dates: start: 20211112, end: 20211112
  7. LORAZEPAM [Concomitant]
     Active Substance: LORAZEPAM
     Dates: start: 20211112, end: 20211112
  8. METOPROLOL [Concomitant]
     Active Substance: METOPROLOL
     Dates: start: 20211112, end: 20211112
  9. MORPHINE [Concomitant]
     Active Substance: MORPHINE
     Dates: start: 20211112, end: 20211113
  10. PANTOPRAZOLE SODIUM [Concomitant]
     Active Substance: PANTOPRAZOLE SODIUM
     Dates: start: 20211112, end: 20211112
  11. REMDESIVIR [Concomitant]
     Active Substance: REMDESIVIR
     Dates: start: 20211112, end: 20211112

REACTIONS (5)
  - Diarrhoea [None]
  - Respiratory failure [None]
  - Renal impairment [None]
  - Multiple organ dysfunction syndrome [None]
  - Hyperkalaemia [None]

NARRATIVE: CASE EVENT DATE: 20211113
